FAERS Safety Report 5281681-X (Version None)
Quarter: 2007Q1

REPORT INFORMATION
  Report Type: 
  Country: None (occurrence: None)
  Receive Date: 20070326
  Receipt Date: 20070312
  Transmission Date: 20070707
  Serious: Yes (Hospitalization)
  Sender: FDA-Public Use
  Company Number: 2007BI001500

PATIENT
  Age: 36 Year
  Sex: Female

DRUGS (3)
  1. AVONEX [Suspect]
     Indication: MULTIPLE SCLEROSIS
     Dosage: QW;IM
     Route: 030
     Dates: start: 20050801, end: 20070101
  2. PREDNISONE TAB [Concomitant]
  3. DESOGESTREL [Concomitant]

REACTIONS (2)
  - FURUNCLE [None]
  - MULTIPLE SCLEROSIS RELAPSE [None]
